FAERS Safety Report 7703613-4 (Version None)
Quarter: 2011Q3

REPORT INFORMATION
  Report Type: 
  Country: None (occurrence: None)
  Receive Date: 20110823
  Receipt Date: 20110817
  Transmission Date: 20111222
  Serious: Yes (Death)
  Sender: FDA-Public Use
  Company Number: PHHY2011ES73627

PATIENT
  Age: 39 Year
  Sex: Male

DRUGS (3)
  1. NEURONTIN [Suspect]
     Dosage: 1800 MG DAILY, (1-1-1)
     Route: 048
     Dates: start: 20100709
  2. TRILEPTAL [Suspect]
     Dosage: 600 MG, QD
     Route: 048
     Dates: start: 20100709
  3. AMITRIPTYLINE HCL [Suspect]
     Dosage: 25 MG, QD
     Route: 048
     Dates: start: 20100210

REACTIONS (1)
  - COMPLETED SUICIDE [None]
